FAERS Safety Report 19105471 (Version 1)
Quarter: 2021Q2

REPORT INFORMATION
  Report Type: Spontaneous
  Country: CA (occurrence: CA)
  Receive Date: 20210408
  Receipt Date: 20210408
  Transmission Date: 20210717
  Serious: Yes (Life-Threatening)
  Sender: FDA-Public Use
  Company Number: CA-ROCHE-2802233

PATIENT
  Age: 74 Year
  Sex: Female
  Weight: 40 kg

DRUGS (14)
  1. LORAZEPAM. [Concomitant]
     Active Substance: LORAZEPAM
  2. NYSTATIN. [Concomitant]
     Active Substance: NYSTATIN
  3. ATROPINE. [Concomitant]
     Active Substance: ATROPINE
  4. METOCLOPRAMIDE. [Concomitant]
     Active Substance: METOCLOPRAMIDE
  5. ONDANSETRON [Concomitant]
     Active Substance: ONDANSETRON
  6. XELODA [Suspect]
     Active Substance: CAPECITABINE
     Indication: PRODUCT USED FOR UNKNOWN INDICATION
     Route: 048
  7. CERAVE [Concomitant]
  8. CBD OIL [Concomitant]
     Active Substance: CANNABIDIOL\HERBALS
  9. KAOPECTATE [BISMUTH SUBSALICYLATE] [Concomitant]
  10. ACETAMINOPHEN. [Concomitant]
     Active Substance: ACETAMINOPHEN
  11. AMLODIPINE [Concomitant]
     Active Substance: AMLODIPINE BESYLATE
  12. TAMOXIFEN [Concomitant]
     Active Substance: TAMOXIFEN
  13. ZOPICLONE [Concomitant]
     Active Substance: ZOPICLONE
  14. RESTORALAX [Concomitant]
     Active Substance: POLYETHYLENE GLYCOL 3350

REACTIONS (8)
  - Pleural effusion [Recovered/Resolved]
  - Pneumonia [Recovered/Resolved]
  - Small intestinal obstruction [Recovered/Resolved]
  - Dehydration [Recovered/Resolved]
  - Diarrhoea [Recovered/Resolved]
  - Weight decreased [Recovered/Resolved]
  - Atelectasis [Recovered/Resolved]
  - Bacteraemia [Recovered/Resolved]
